FAERS Safety Report 17653937 (Version 1)
Quarter: 2020Q2

REPORT INFORMATION
  Report Type: Spontaneous
  Country: US (occurrence: US)
  Receive Date: 20200410
  Receipt Date: 20200410
  Transmission Date: 20200713
  Serious: No
  Sender: FDA-Public Use
  Company Number: NVSC2020US094615

PATIENT
  Sex: Female

DRUGS (3)
  1. VOTRIENT [Suspect]
     Active Substance: PAZOPANIB HYDROCHLORIDE
     Indication: MALIGNANT CONNECTIVE TISSUE NEOPLASM
     Dosage: 200 MG, BID (2 TABLETS BY MOUTH DAILY FOR 4 DAYS)
     Route: 048
     Dates: start: 20200319
  2. VOTRIENT [Suspect]
     Active Substance: PAZOPANIB HYDROCHLORIDE
     Dosage: 200 MG, QID (4 TABLETS DAILY THEREAFTER)
     Route: 048
  3. VOTRIENT [Suspect]
     Active Substance: PAZOPANIB HYDROCHLORIDE
     Dosage: 200 MG, TID  (2 TABLETS BY MOUTH DAILY FOR 4 DAYS)
     Route: 048

REACTIONS (2)
  - Flatulence [Unknown]
  - Diarrhoea [Unknown]
